FAERS Safety Report 10196478 (Version 1)
Quarter: 2014Q2

REPORT INFORMATION
  Report Type: Spontaneous
  Country: US (occurrence: None)
  Receive Date: 20140523
  Receipt Date: 20140523
  Transmission Date: 20141212
  Serious: Yes (Life-Threatening)
  Sender: FDA-Public Use
  Company Number: None

PATIENT
  Sex: 0

DRUGS (2)
  1. RISPERDAL [Suspect]
  2. INVEGA [Suspect]

REACTIONS (8)
  - Thinking abnormal [None]
  - Cough [None]
  - Rhinorrhoea [None]
  - Diarrhoea [None]
  - Mental disorder [None]
  - Dizziness [None]
  - Balance disorder [None]
  - Insomnia [None]
